FAERS Safety Report 8365937-X (Version None)
Quarter: 2012Q2

REPORT INFORMATION
  Report Type: 
  Country: None (occurrence: None)
  Receive Date: 20120517
  Receipt Date: 20120511
  Transmission Date: 20120825
  Serious: No
  Sender: FDA-Public Use
  Company Number: US-PFIZER INC-2012087974

PATIENT
  Sex: Female
  Weight: 74.8 kg

DRUGS (6)
  1. TYLENOL (CAPLET) [Concomitant]
     Dosage: UNK
  2. LORAZEPAM [Concomitant]
     Indication: ANXIETY
     Dosage: 0.5 MG, AS NEEDED
  3. SUTENT [Suspect]
     Indication: METASTATIC RENAL CELL CARCINOMA
     Dosage: 50 MG, 1 CAPSULE DAILY, (CYCLE 4 WEEKS ON + 2 OFF)
     Dates: start: 20120210
  4. LOSARTAN [Concomitant]
     Dosage: UNK
  5. HYDROCHLOROTHIAZIDE [Concomitant]
     Dosage: UNK
  6. FOLIC ACID [Concomitant]
     Dosage: UNK

REACTIONS (15)
  - EARLY SATIETY [None]
  - ERUCTATION [None]
  - BONE PAIN [None]
  - GASTROOESOPHAGEAL REFLUX DISEASE [None]
  - BACK PAIN [None]
  - CONSTIPATION [None]
  - MUSCULOSKELETAL CHEST PAIN [None]
  - FLUID INTAKE REDUCED [None]
  - WEIGHT DECREASED [None]
  - SKIN DISCOLOURATION [None]
  - HAIR COLOUR CHANGES [None]
  - NAUSEA [None]
  - ABDOMINAL DISCOMFORT [None]
  - BODY TEMPERATURE INCREASED [None]
  - ALOPECIA [None]
